FAERS Safety Report 6698658-X (Version None)
Quarter: 2010Q2

REPORT INFORMATION
  Report Type: 
  Country: None (occurrence: None)
  Receive Date: 20100427
  Receipt Date: 20100414
  Transmission Date: 20101027
  Serious: Yes (Hospitalization, Other)
  Sender: FDA-Public Use
  Company Number: PHHY2010US20569

PATIENT
  Sex: Male
  Weight: 100.9 kg

DRUGS (20)
  1. EXJADE [Suspect]
     Indication: ACUTE MYELOID LEUKAEMIA
     Dosage: 2000 MG, QD
     Route: 048
     Dates: start: 20091228
  2. EXJADE [Suspect]
     Indication: IRON OVERLOAD
  3. ACYCLOVIR [Concomitant]
     Dosage: 400 MG, BID
     Route: 048
     Dates: start: 20080928
  4. AZITHROMYCIN [Concomitant]
  5. WELLBUTRIN [Concomitant]
  6. FOLIC ACID [Concomitant]
     Dosage: 1 MG, QD
     Route: 048
  7. MIRTAZAPINE [Concomitant]
     Dosage: 30 MG, QD EVERY DAY BEFORE SLEEP
     Route: 048
  8. MULTI-VITAMIN [Concomitant]
     Dosage: DAILY
  9. COMPAZINE [Concomitant]
  10. SENNA [Concomitant]
  11. ZANTAC [Concomitant]
     Dosage: 1 DF, QD
     Route: 048
  12. ZOLPIDEM [Concomitant]
     Dosage: 10 MG, QD EVERY DAY BEFORE SLEEP
     Route: 048
     Dates: start: 20091114
  13. CIPROFLOXACIN [Concomitant]
     Dosage: 500 MG, QD
     Route: 048
  14. RANITIDINE [Concomitant]
     Dosage: 150 MG, QD
     Route: 048
  15. BUPROPION [Concomitant]
     Dosage: 150 MG, TID
     Dates: start: 20081114
  16. PROCHLORPERAZINE [Concomitant]
     Dosage: 10 MG, PRN
     Dates: start: 20091114
  17. FLUCONAZOLE [Concomitant]
     Dosage: 100 MG DAILY
     Route: 048
  18. DOLASETRON MESYLATE [Concomitant]
     Dosage: 100 MG, PRN
     Route: 048
  19. AMOXICILLIN SODIUM W/CLAVULANATE POTASSIUM [Concomitant]
     Dosage: 875 MG, UNK
     Route: 048
  20. BLOOD TRANSFUSION, AUXILIARY PRODUCTS [Concomitant]

REACTIONS (11)
  - ACUTE MYELOID LEUKAEMIA RECURRENT [None]
  - BLOOD IRON INCREASED [None]
  - BONE MARROW FAILURE [None]
  - COUGH [None]
  - ELECTROCARDIOGRAM QT PROLONGED [None]
  - FATIGUE [None]
  - FULL BLOOD COUNT DECREASED [None]
  - PANCYTOPENIA [None]
  - SINUS CONGESTION [None]
  - SINUS DISORDER [None]
  - THROMBOCYTOPENIA [None]
